FAERS Safety Report 9145582 (Version 1)
Quarter: 2013Q1

REPORT INFORMATION
  Report Type: Spontaneous
  Country: JP (occurrence: JP)
  Receive Date: 20130307
  Receipt Date: 20130307
  Transmission Date: 20140127
  Serious: Yes (Other)
  Sender: FDA-Public Use
  Company Number: JP-JNJFOC-20120803161

PATIENT
  Age: 43 Year
  Sex: Male
  Weight: 53 kg

DRUGS (5)
  1. REMICADE [Suspect]
     Indication: CROHN^S DISEASE
     Dosage: 9TH DOSE
     Route: 042
     Dates: start: 20120927
  2. REMICADE [Suspect]
     Indication: CROHN^S DISEASE
     Dosage: 11TH DOSE
     Route: 042
     Dates: start: 20121122
  3. REMICADE [Suspect]
     Indication: CROHN^S DISEASE
     Route: 042
     Dates: start: 20110902
  4. REMICADE [Suspect]
     Indication: CROHN^S DISEASE
     Dosage: 8TH DOSE
     Route: 042
     Dates: start: 20120802
  5. LACTEC [Concomitant]
     Route: 065
     Dates: start: 20120806

REACTIONS (2)
  - Vasculitis [Recovered/Resolved]
  - Injection site reaction [Recovered/Resolved]
